FAERS Safety Report 19653280 (Version 1)
Quarter: 2021Q3

REPORT INFORMATION
  Report Type: Spontaneous
  Country: TW (occurrence: TW)
  Receive Date: 20210803
  Receipt Date: 20210803
  Transmission Date: 20211014
  Serious: Yes (Other)
  Sender: FDA-Public Use
  Company Number: TW-ALVOGEN-2021-ALVOGEN-117287

PATIENT
  Age: 20 Year
  Sex: Female

DRUGS (2)
  1. BUPROPION. [Suspect]
     Active Substance: BUPROPION
     Indication: MAJOR DEPRESSION
     Dosage: (BUPROPION SR) 150 MG/D FOR ABOUT ONE MONTH
  2. CYPROTERONE ACETATE/ETHINYLESTRADIOL [Interacting]
     Active Substance: CYPROTERONE ACETATE\ETHINYL ESTRADIOL
     Indication: INTERMENSTRUAL BLEEDING
     Dosage: 2 MG PER DAY/35 UG PER DAY
     Route: 048

REACTIONS (2)
  - Epilepsy [Recovered/Resolved]
  - Drug interaction [Recovered/Resolved]
